FAERS Safety Report 6702785-8 (Version None)
Quarter: 2010Q2

REPORT INFORMATION
  Report Type: 
  Country: None (occurrence: None)
  Receive Date: 20100429
  Receipt Date: 20100420
  Transmission Date: 20101027
  Serious: Yes (Hospitalization)
  Sender: FDA-Public Use
  Company Number: FR-ELI_LILLY_AND_COMPANY-FR201004004982

PATIENT
  Age: 53 Year
  Sex: Male

DRUGS (2)
  1. ALIMTA [Suspect]
     Indication: LUNG ADENOCARCINOMA
     Dosage: UNK, UNKNOWN
     Route: 042
     Dates: end: 20100115
  2. CISPLATIN [Concomitant]
     Indication: LUNG ADENOCARCINOMA
     Dosage: UNK, UNKNOWN
     Route: 042
     Dates: end: 20100115

REACTIONS (2)
  - VOMITING [None]
  - WEIGHT DECREASED [None]
